FAERS Safety Report 23287148 (Version 1)
Quarter: 2023Q4

REPORT INFORMATION
  Report Type: Report from Study
  Country: US (occurrence: US)
  Receive Date: 20231212
  Receipt Date: 20231212
  Transmission Date: 20240109
  Serious: Yes (Other)
  Sender: FDA-Public Use
  Company Number: US-ABBVIE-5529071

PATIENT
  Sex: Female

DRUGS (1)
  1. HUMIRA [Suspect]
     Active Substance: ADALIMUMAB
     Indication: Product used for unknown indication
     Route: 058
     Dates: start: 20211205

REACTIONS (6)
  - Cardiac disorder [Unknown]
  - Amnesia [Unknown]
  - Drug ineffective [Unknown]
  - Coma [Unknown]
  - Condition aggravated [Unknown]
  - Gait disturbance [Unknown]
